FAERS Safety Report 13230107 (Version 12)
Quarter: 2019Q2

REPORT INFORMATION
  Report Type: Report from Study
  Country: US (occurrence: US)
  Receive Date: 20170214
  Receipt Date: 20190517
  Transmission Date: 20190711
  Serious: Yes (Hospitalization, Other)
  Sender: FDA-Public Use
  Company Number: PHEH2017US004545

PATIENT
  Sex: Male

DRUGS (3)
  1. PERCOCET [Concomitant]
     Active Substance: ACETAMINOPHEN\OXYCODONE HYDROCHLORIDE
     Indication: CONGENITAL SPONDYLOLYSIS
     Route: 065
  2. AFINITOR [Suspect]
     Active Substance: EVEROLIMUS
     Indication: ANGIOMYOLIPOMA
     Dosage: 5 MG, QD
     Route: 048
     Dates: start: 20140821
  3. AFINITOR [Suspect]
     Active Substance: EVEROLIMUS
     Indication: ASTROCYTOMA, LOW GRADE

REACTIONS (19)
  - Hypotension [Unknown]
  - Dizziness [Recovering/Resolving]
  - Seizure [Unknown]
  - Pancreatic mass [Unknown]
  - Lung infection [Unknown]
  - Spondylitis [Unknown]
  - Blood potassium decreased [Unknown]
  - Blood glucose increased [Unknown]
  - Lumbar spinal stenosis [Unknown]
  - Facet joint syndrome [Unknown]
  - Blood cholesterol increased [Unknown]
  - Weight decreased [Unknown]
  - Malaise [Unknown]
  - Hepatic enzyme increased [Unknown]
  - Diplopia [Recovering/Resolving]
  - Blood sodium decreased [Unknown]
  - Spinal fracture [Unknown]
  - Viral infection [Unknown]
  - Blood triglycerides increased [Unknown]
